FAERS Safety Report 14156479 (Version 2)
Quarter: 2019Q2

REPORT INFORMATION
  Report Type: Spontaneous
  Country: PT (occurrence: PT)
  Receive Date: 20171103
  Receipt Date: 20190522
  Transmission Date: 20190711
  Serious: Yes (Other)
  Sender: FDA-Public Use
  Company Number: PT-ROCHE-2016715

PATIENT
  Sex: Male

DRUGS (2)
  1. RIVOTRIL [Suspect]
     Active Substance: CLONAZEPAM
     Indication: SLEEP DISORDER
     Dosage: 1 DROP AT NIGHT
     Route: 048
     Dates: start: 20171026
  2. RIVOTRIL [Suspect]
     Active Substance: CLONAZEPAM
     Indication: OFF LABEL USE

REACTIONS (5)
  - Crying [Recovered/Resolved]
  - Off label use [Unknown]
  - Agitation [Recovered/Resolved]
  - Anxiety [Recovered/Resolved]
  - Autism spectrum disorder [Unknown]

NARRATIVE: CASE EVENT DATE: 20171027
